FAERS Safety Report 24027509 (Version 3)
Quarter: 2025Q3

REPORT INFORMATION
  Report Type: Spontaneous
  Country: EU (occurrence: EU)
  Receive Date: 20240628
  Receipt Date: 20250803
  Transmission Date: 20251021
  Serious: Yes (Death, Hospitalization, Other)
  Sender: ALEXION PHARMACEUTICALS
  Company Number: None

PATIENT
  Age: 72 Year
  Sex: Male

DRUGS (1)
  1. IMFINZI [Suspect]
     Active Substance: DURVALUMAB
     Dates: start: 20240213, end: 20240424

REACTIONS (2)
  - C3 glomerulopathy [Not Recovered/Not Resolved]
  - Medication error [Fatal]

NARRATIVE: CASE EVENT DATE: 20240506
